FAERS Safety Report 8494010-5 (Version None)
Quarter: 2012Q3

REPORT INFORMATION
  Report Type: 
  Country: None (occurrence: None)
  Receive Date: 20120709
  Receipt Date: 20120629
  Transmission Date: 20120928
  Serious: Yes (Hospitalization)
  Sender: FDA-Public Use
  Company Number: US-BIOGENIDEC-2012BI020852

PATIENT
  Age: 53 Year
  Sex: Male

DRUGS (1)
  1. AVONEX [Suspect]
     Indication: MULTIPLE SCLEROSIS
     Route: 030
     Dates: start: 20060707, end: 20120315

REACTIONS (4)
  - HIP ARTHROPLASTY [None]
  - PULMONARY EMBOLISM [None]
  - PNEUMONIA [None]
  - HEPATIC ENZYME INCREASED [None]
